FAERS Safety Report 6536976-6 (Version None)
Quarter: 2010Q1

REPORT INFORMATION
  Report Type: 
  Country: None (occurrence: None)
  Receive Date: 20100107
  Receipt Date: 20081217
  Transmission Date: 20100710
  Serious: Yes (Hospitalization, Other)
  Sender: FDA-Public Use
  Company Number: 2008AP003607

PATIENT
  Age: 68 Year
  Sex: Female

DRUGS (2)
  1. ALBUTEROL SULFATE [Suspect]
     Indication: RESPIRATORY DISTRESS
     Dosage: INH
     Route: 055
  2. LASIX [Suspect]
     Indication: OEDEMA PERIPHERAL
     Dosage: 40 MCG;

REACTIONS (10)
  - HEART RATE INCREASED [None]
  - HYPOKALAEMIA [None]
  - MYOCARDIAL ISCHAEMIA [None]
  - OEDEMA PERIPHERAL [None]
  - OVERDOSE [None]
  - PALLOR [None]
  - RESPIRATORY ALKALOSIS [None]
  - VENTRICULAR EXTRASYSTOLES [None]
  - VENTRICULAR TACHYCARDIA [None]
  - WHEEZING [None]
